FAERS Safety Report 19023645 (Version 3)
Quarter: 2021Q1

REPORT INFORMATION
  Report Type: Report from Study
  Country: US (occurrence: US)
  Receive Date: 20210318
  Receipt Date: 20210331
  Transmission Date: 20210420
  Serious: Yes (Death, Hospitalization)
  Sender: FDA-Public Use
  Company Number: US-ROCHE-2791838

PATIENT
  Age: 53 Year
  Sex: Male
  Weight: 75.28 kg

DRUGS (39)
  1. METAMUCIL PLUS CALCIUM [Concomitant]
  2. DEXAMETHASONE. [Concomitant]
     Active Substance: DEXAMETHASONE
  3. MEBENDAZOLE. [Concomitant]
     Active Substance: MEBENDAZOLE
  4. TRAZODONE [Concomitant]
     Active Substance: TRAZODONE HYDROCHLORIDE
  5. PROCHLORPERAZINE. [Concomitant]
     Active Substance: PROCHLORPERAZINE
  6. LIDOCAINE. [Concomitant]
     Active Substance: LIDOCAINE
  7. ACETAMINOPHEN. [Concomitant]
     Active Substance: ACETAMINOPHEN
  8. ONDANSETRON [Concomitant]
     Active Substance: ONDANSETRON
  9. IBUPROFEN. [Concomitant]
     Active Substance: IBUPROFEN
  10. TAMSULOSIN [Concomitant]
     Active Substance: TAMSULOSIN
  11. OXYGEN. [Concomitant]
     Active Substance: OXYGEN
  12. METHADONE [Concomitant]
     Active Substance: METHADONE HYDROCHLORIDE
  13. SODIUM BICARBONATE. [Concomitant]
     Active Substance: SODIUM BICARBONATE
  14. ALPRAZOLAM. [Concomitant]
     Active Substance: ALPRAZOLAM
  15. FAMOTIDINE. [Concomitant]
     Active Substance: FAMOTIDINE
  16. CANNABIDIOL [Concomitant]
     Active Substance: CANNABIDIOL
  17. MORPHINE [Concomitant]
     Active Substance: MORPHINE
  18. GABAPENTIN. [Concomitant]
     Active Substance: GABAPENTIN
  19. DOCUSATE SODIUM + SENNA [Concomitant]
     Active Substance: DOCUSATE SODIUM\SENNOSIDE A\SENNOSIDE B
  20. NALOXONE [Concomitant]
     Active Substance: NALOXONE
  21. ZEBETA [Concomitant]
     Active Substance: BISOPROLOL FUMARATE
  22. COBIMETINIB. [Suspect]
     Active Substance: COBIMETINIB
     Indication: NON-SMALL CELL LUNG CANCER
     Dosage: BIWEEKLY (DAY 1 AND DAY 2)?ON 03/MAR/2021, HE RECEIVED LAST DOSE OF COBIMETINIB PRIOR TO ONSET OF SE
     Route: 065
     Dates: start: 20210216, end: 20210309
  23. MELATONIN [Concomitant]
     Active Substance: MELATONIN
  24. NEBIVOLOL. [Concomitant]
     Active Substance: NEBIVOLOL
  25. AMBIEN CR [Concomitant]
     Active Substance: ZOLPIDEM TARTRATE
  26. CURCUMIN [Concomitant]
     Active Substance: CURCUMIN
  27. NARCAN [Concomitant]
     Active Substance: NALOXONE HYDROCHLORIDE
  28. GLUCOPHAGE [Concomitant]
     Active Substance: METFORMIN HYDROCHLORIDE
  29. ZOLPIDEM [Concomitant]
     Active Substance: ZOLPIDEM TARTRATE
  30. AMLODIPINE [Concomitant]
     Active Substance: AMLODIPINE BESYLATE
  31. TAXOTERE [Concomitant]
     Active Substance: DOCETAXEL
  32. ASPIRIN. [Concomitant]
     Active Substance: ASPIRIN
  33. ZOMIG [Concomitant]
     Active Substance: ZOLMITRIPTAN
  34. ATORVASTATIN [Concomitant]
     Active Substance: ATORVASTATIN
  35. KEYTRUDA [Concomitant]
     Active Substance: PEMBROLIZUMAB
  36. CYBERKNIFE [Concomitant]
  37. ESCITALOPRAM [Concomitant]
     Active Substance: ESCITALOPRAM OXALATE
  38. FAMOTIDINE. [Concomitant]
     Active Substance: FAMOTIDINE
  39. GALCANEZUMAB [Concomitant]
     Active Substance: GALCANEZUMAB

REACTIONS (1)
  - Pneumonitis [Fatal]

NARRATIVE: CASE EVENT DATE: 20210307
